FAERS Safety Report 7072361-9 (Version None)
Quarter: 2010Q4

REPORT INFORMATION
  Report Type: 
  Country: None (occurrence: None)
  Receive Date: 20101029
  Receipt Date: 20100118
  Transmission Date: 20110411
  Serious: No
  Sender: FDA-Public Use
  Company Number: A0839945A

PATIENT
  Age: 70 Year
  Sex: Female

DRUGS (10)
  1. ADVAIR DISKUS 100/50 [Suspect]
     Indication: CHRONIC OBSTRUCTIVE PULMONARY DISEASE
     Dosage: 1PUFF TWICE PER DAY
     Route: 055
     Dates: start: 20091101
  2. NEXIUM [Concomitant]
  3. AVANDARYL [Concomitant]
  4. ASPIRIN [Concomitant]
  5. LOPRESSOR [Concomitant]
  6. CLARITIN [Concomitant]
  7. ALDACTONE [Concomitant]
  8. ZOCOR [Concomitant]
  9. EYE DROP [Concomitant]
     Indication: GLAUCOMA
  10. ALBUTEROL [Concomitant]

REACTIONS (3)
  - DYSPHONIA [None]
  - MOUTH ULCERATION [None]
  - TREMOR [None]
